FAERS Safety Report 8017639-7 (Version None)
Quarter: 2012Q1

REPORT INFORMATION
  Report Type: 
  Country: None (occurrence: None)
  Receive Date: 20120103
  Receipt Date: 20111220
  Transmission Date: 20120608
  Serious: Yes (Other)
  Sender: FDA-Public Use
  Company Number: CA-JNJFOC-20111211271

PATIENT
  Sex: Female
  Weight: 95 kg

DRUGS (9)
  1. FOLIC ACID [Concomitant]
     Route: 065
  2. VITAMIN D [Concomitant]
     Route: 065
  3. LIPITOR [Concomitant]
     Route: 065
  4. SYNTHROID [Concomitant]
     Route: 065
  5. CALCIUM ACETATE [Concomitant]
     Route: 065
  6. ZOLEDRONOC ACID [Concomitant]
     Route: 065
  7. REMICADE [Suspect]
     Indication: PSORIATIC ARTHROPATHY
     Route: 042
     Dates: start: 20081201
  8. VITAMIN C [Concomitant]
     Route: 065
  9. METHOTREXATE [Concomitant]
     Route: 065

REACTIONS (3)
  - PALPITATIONS [None]
  - DIZZINESS [None]
  - SYNCOPE [None]
